FAERS Safety Report 17186626 (Version 2)
Quarter: 2020Q1

REPORT INFORMATION
  Report Type: Spontaneous
  Country: SI (occurrence: SI)
  Receive Date: 20191220
  Receipt Date: 20200205
  Transmission Date: 20200409
  Serious: Yes (Life-Threatening, Other)
  Sender: FDA-Public Use
  Company Number: SI-BRISTOL-MYERS SQUIBB COMPANY-BMS-2015-072469

PATIENT
  Age: 88 Year
  Sex: Female

DRUGS (13)
  1. MOXOGAMMA [Concomitant]
     Active Substance: MOXONIDINE
     Indication: PRODUCT USED FOR UNKNOWN INDICATION
     Dosage: 6.25 MG, UNK
     Route: 065
  2. PLIVIT D3 [Concomitant]
     Active Substance: CHOLECALCIFEROL
     Indication: PRODUCT USED FOR UNKNOWN INDICATION
     Dosage: UNK
     Route: 065
  3. HUMULINA REGULAR [Concomitant]
     Indication: DIABETES MELLITUS
     Dosage: UNK
     Route: 065
  4. NOLPAZA [Concomitant]
     Active Substance: PANTOPRAZOLE SODIUM
     Indication: PRODUCT USED FOR UNKNOWN INDICATION
     Dosage: 40 MILLIGRAM, QD
     Route: 065
  5. TULIP [FLURBIPROFEN] [Concomitant]
     Indication: DYSLIPIDAEMIA
     Dosage: 20 MG, UNK
     Route: 065
  6. LERCAPRESS [ENALAPRIL MALEATE;LERCANIDIPINE HYDROCHLORIDE] [Concomitant]
     Active Substance: ENALAPRIL MALEATE\LERCANIDIPINE HYDROCHLORIDE
     Indication: PRODUCT USED FOR UNKNOWN INDICATION
     Dosage: 20 MG, UNK
     Route: 065
  7. YASNAL [Concomitant]
     Indication: DEMENTIA
     Dosage: 5 MILLIGRAM, QD
     Route: 065
  8. CALCIUM CARBONATE. [Concomitant]
     Active Substance: CALCIUM CARBONATE
     Indication: OSTEOPOROSIS
     Dosage: UNK
     Route: 065
  9. ELIQUIS [Suspect]
     Active Substance: APIXABAN
     Indication: CEREBROVASCULAR ACCIDENT PROPHYLAXIS
     Dosage: 2.5 MG, BID
     Route: 048
     Dates: end: 20150409
  10. SERETIDE [Concomitant]
     Active Substance: FLUTICASONE PROPIONATE\SALMETEROL XINAFOATE
     Indication: ASTHMA
     Dosage: 1 DOSAGE FORM
     Route: 065
  11. VENTOLIN [Concomitant]
     Active Substance: ALBUTEROL SULFATE
     Indication: PRODUCT USED FOR UNKNOWN INDICATION
     Dosage: UNK
     Route: 065
  12. RAVEL [Concomitant]
     Indication: HYPERTENSION
     Dosage: 1 TAB, UNK
     Route: 065
  13. CORYOL [CARVEDILOL] [Concomitant]
     Active Substance: CARVEDILOL
     Indication: PRODUCT USED FOR UNKNOWN INDICATION
     Dosage: 6.25 MG, UNK
     Route: 065

REACTIONS (1)
  - Haemorrhage intracranial [Recovering/Resolving]

NARRATIVE: CASE EVENT DATE: 20150409
